FAERS Safety Report 9710103 (Version 3)
Quarter: 2014Q1

REPORT INFORMATION
  Report Type: Spontaneous
  Country: US (occurrence: US)
  Receive Date: 20131126
  Receipt Date: 20140116
  Transmission Date: 20141002
  Serious: Yes (Other)
  Sender: FDA-Public Use
  Company Number: US-JNJFOC-20131109216

PATIENT
  Age: 47 Year
  Sex: Female

DRUGS (3)
  1. TYLENOL UNSPECIFIED [Suspect]
     Route: 048
  2. TYLENOL UNSPECIFIED [Suspect]
     Indication: PRODUCT USED FOR UNKNOWN INDICATION
     Route: 048
  3. LASIX [Concomitant]
     Indication: VEIN DISORDER
     Route: 065

REACTIONS (11)
  - Hepatic steatosis [Unknown]
  - Vein disorder [Unknown]
  - Pneumonia [Unknown]
  - Medication error [Unknown]
  - Nasopharyngitis [Unknown]
  - Ear infection [Unknown]
  - Oropharyngeal pain [Unknown]
  - Hearing impaired [Unknown]
  - Cow^s milk intolerance [Unknown]
  - Diarrhoea [Unknown]
  - Abdominal pain [Unknown]
